FAERS Safety Report 5502774-5 (Version None)
Quarter: 2007Q4

REPORT INFORMATION
  Report Type: 
  Country: None (occurrence: None)
  Receive Date: 20071031
  Receipt Date: 20071024
  Transmission Date: 20080405
  Serious: Yes (Hospitalization)
  Sender: FDA-Public Use
  Company Number: BR-WYE-H00829307

PATIENT
  Sex: Female

DRUGS (1)
  1. TRIQUILAR-21 [Suspect]
     Indication: ORAL CONTRACEPTION
     Route: 048
     Dates: start: 20020101

REACTIONS (2)
  - FURUNCLE [None]
  - NAUSEA [None]
